FAERS Safety Report 21504957 (Version 1)
Quarter: 2022Q4

REPORT INFORMATION
  Report Type: Other
  Country: JP (occurrence: JP)
  Receive Date: 20221025
  Receipt Date: 20221025
  Transmission Date: 20230113
  Serious: Yes (Hospitalization)
  Sender: FDA-Public Use
  Company Number: JP-CHUGAI-2022042018

PATIENT
  Age: 69 Year
  Sex: Female

DRUGS (6)
  1. ACTEMRA [Suspect]
     Active Substance: TOCILIZUMAB
     Indication: Rheumatoid arthritis
     Dosage: 162 MILLIGRAM, ONCE/2WEEKS
     Route: 058
  2. INSULIN LISPRO BIOSIMILAR 1 [Concomitant]
     Dosage: 13 UNITS IN THE MORNING, 11 UNITS IN THE AFTERNOON, 6 UNITS IN THE EVENING
     Route: 065
  3. SITAGLIPTIN PHOSPHATE [Concomitant]
     Active Substance: SITAGLIPTIN PHOSPHATE
     Dosage: 50MG/DAY
     Route: 065
  4. METFORMIN HYDROCHLORIDE [Concomitant]
     Active Substance: METFORMIN HYDROCHLORIDE
     Dosage: 500MG/DAY
  5. EZETIMIBE [Concomitant]
     Active Substance: EZETIMIBE
     Dosage: 10MG/DAY
     Route: 065
  6. TELMISARTAN [Concomitant]
     Active Substance: TELMISARTAN
     Dosage: 40MG/DAY
     Route: 065

REACTIONS (1)
  - COVID-19 pneumonia [Recovered/Resolved]
